FAERS Safety Report 6314337-2 (Version None)
Quarter: 2009Q3

REPORT INFORMATION
  Report Type: 
  Country: None (occurrence: None)
  Receive Date: 20090819
  Receipt Date: 20090811
  Transmission Date: 20100115
  Serious: Yes (Hospitalization)
  Sender: FDA-Public Use
  Company Number: US-ELI_LILLY_AND_COMPANY-US200907001842

PATIENT
  Sex: Male
  Weight: 109.75 kg

DRUGS (4)
  1. BYETTA [Suspect]
     Indication: TYPE 2 DIABETES MELLITUS
     Dosage: 5 UG, 2/D
     Dates: start: 20071116, end: 20090128
  2. BYETTA [Suspect]
     Dosage: 10 UG, 2/D
     Dates: start: 20090128, end: 20090601
  3. BENAZEPRIL HYDROCHLORIDE [Concomitant]
     Indication: DIABETES MELLITUS
     Dosage: 10 MG, DAILY (1/D)
     Route: 048
     Dates: start: 20090108, end: 20090629
  4. ZOCOR [Concomitant]
     Indication: LOW DENSITY LIPOPROTEIN
     Dosage: 40 MG, DAILY (1/D)
     Route: 048
     Dates: start: 20090108, end: 20090708

REACTIONS (3)
  - ARTHRITIS [None]
  - PANCREATITIS [None]
  - WEIGHT DECREASED [None]
